FAERS Safety Report 9469893 (Version 3)
Quarter: 2013Q4

REPORT INFORMATION
  Report Type: Report from Study
  Country: JP (occurrence: JP)
  Receive Date: 20130822
  Receipt Date: 20131011
  Transmission Date: 20140711
  Serious: Yes (Other)
  Sender: FDA-Public Use
  Company Number: JP-NAPPMUNDI-GBR-2013-0015356

PATIENT
  Age: 83 Year
  Sex: Female

DRUGS (1)
  1. OXYCODONE HYDROCHLORIDE [Suspect]
     Indication: LIPOSARCOMA
     Dosage: UNK
     Route: 058

REACTIONS (3)
  - Constipation [Recovering/Resolving]
  - Delirium [Recovering/Resolving]
  - Pyrexia [Not Recovered/Not Resolved]
